FAERS Safety Report 7438510-5 (Version None)
Quarter: 2011Q2

REPORT INFORMATION
  Report Type: 
  Country: None (occurrence: None)
  Receive Date: 20110426
  Receipt Date: 20110106
  Transmission Date: 20111010
  Serious: No
  Sender: FDA-Public Use
  Company Number: US-BAYER-2011-029812

PATIENT
  Sex: Female
  Weight: 32 kg

DRUGS (2)
  1. ALEVE (CAPLET) [Suspect]
     Indication: ARTHRITIS
     Route: 048
  2. HUMIRA [Concomitant]

REACTIONS (1)
  - ABDOMINAL PAIN UPPER [None]
